FAERS Safety Report 15710695 (Version 1)
Quarter: 2018Q4

REPORT INFORMATION
  Report Type: Spontaneous
  Country: ID (occurrence: ID)
  Receive Date: 20181211
  Receipt Date: 20181211
  Transmission Date: 20190205
  Serious: Yes (Other)
  Sender: FDA-Public Use
  Company Number: ID-SAKK-2018SA193754AA

PATIENT
  Age: 49 Year
  Sex: Female
  Weight: 74 kg

DRUGS (4)
  1. DIAMICRON [Concomitant]
     Active Substance: GLICLAZIDE
     Indication: TYPE 2 DIABETES MELLITUS
     Dosage: 10 MG, QD
     Route: 048
  2. LANTUS XR [Suspect]
     Active Substance: INSULIN GLARGINE
     Indication: TYPE 2 DIABETES MELLITUS
     Dosage: 22 IU, QD
     Route: 058
     Dates: start: 20180115
  3. FORXIGA [Concomitant]
     Active Substance: DAPAGLIFLOZIN
     Indication: TYPE 2 DIABETES MELLITUS
     Dosage: 20 MG, QD
     Route: 048
  4. COBAZIM [Concomitant]
     Indication: VITAMIN B12
     Dosage: UNK UNK, BID
     Route: 048
     Dates: start: 20180712

REACTIONS (3)
  - Pancreatitis [Recovered/Resolved]
  - Flatulence [Recovered/Resolved]
  - Abdominal distension [Unknown]

NARRATIVE: CASE EVENT DATE: 20180712
